FAERS Safety Report 19476638 (Version 1)
Quarter: 2021Q2

REPORT INFORMATION
  Report Type: Spontaneous
  Country: US (occurrence: US)
  Receive Date: 20210630
  Receipt Date: 20210630
  Transmission Date: 20210717
  Serious: Yes (Other)
  Sender: FDA-Public Use
  Company Number: US-ROCHE-2857026

PATIENT
  Sex: Male

DRUGS (5)
  1. AMITRIPTYLINE HCL [Concomitant]
     Active Substance: AMITRIPTYLINE
  2. WELLBUTRIN XL [Concomitant]
     Active Substance: BUPROPION HYDROCHLORIDE
  3. LATUDA [Concomitant]
     Active Substance: LURASIDONE HYDROCHLORIDE
  4. HEMLIBRA [Suspect]
     Active Substance: EMICIZUMAB-KXWH
     Indication: FACTOR VIII DEFICIENCY
     Dosage: INJECT HEMLIBRA 480MG SUBCUTANEOUSLY EVERY 7 DAYS FOR 4 WEEKS.?INJECT INTO 3 DIFFERENT SITES. LIMIT
     Route: 058
  5. CELEBREX [Concomitant]
     Active Substance: CELECOXIB

REACTIONS (4)
  - Erythema [Unknown]
  - Inflammation [Unknown]
  - Pruritus [Recovered/Resolved]
  - Abdominal pain upper [Recovered/Resolved]
